FAERS Safety Report 5971576-8 (Version None)
Quarter: 2008Q4

REPORT INFORMATION
  Report Type: 
  Country: None (occurrence: None)
  Receive Date: 20081201
  Receipt Date: 20081122
  Transmission Date: 20090506
  Serious: No
  Sender: FDA-Public Use
  Company Number: BR-JNJFOC-20080905280

PATIENT
  Sex: Female
  Weight: 105 kg

DRUGS (7)
  1. DURAGESIC-100 [Suspect]
     Indication: PAIN
     Route: 062
  2. DURAGESIC-100 [Suspect]
     Indication: ANALGESIA
     Route: 062
  3. ATENOLOL [Concomitant]
     Indication: SENSATION OF PRESSURE
     Route: 048
  4. ATENOLOL [Concomitant]
     Indication: HYPERTENSION
     Route: 048
  5. NOCTOL [Concomitant]
     Indication: SLEEP DISORDER THERAPY
     Route: 048
  6. NOVALGINA [Concomitant]
     Indication: ANALGESIA
     Route: 048
  7. TORAGESIC [Concomitant]
     Indication: ANALGESIA

REACTIONS (6)
  - ABDOMINAL PAIN UPPER [None]
  - APPLICATION SITE DERMATITIS [None]
  - APPLICATION SITE IRRITATION [None]
  - APPLICATION SITE PRURITUS [None]
  - PRODUCT QUALITY ISSUE [None]
  - WRONG TECHNIQUE IN DRUG USAGE PROCESS [None]
